FAERS Safety Report 17287921 (Version 3)
Quarter: 2020Q1

REPORT INFORMATION
  Report Type: Spontaneous
  Country: US (occurrence: US)
  Receive Date: 20200120
  Receipt Date: 20200320
  Transmission Date: 20200409
  Serious: No
  Sender: FDA-Public Use
  Company Number: US-ASTRAZENECA-2019SF73976

PATIENT
  Sex: Male
  Weight: 90.7 kg

DRUGS (5)
  1. SYMBICORT [Suspect]
     Active Substance: BUDESONIDE\FORMOTEROL FUMARATE DIHYDRATE
     Indication: ASTHMA
     Dosage: 160/4.5MCG TWO PUFFS WITH ONE YEAR OFF SOMEWHERE IN THE MIDDLE BECAUSE OF INSURANCE
     Route: 055
  2. PREDNISONE. [Concomitant]
     Active Substance: PREDNISONE
     Indication: ASTHMA
  3. SYMBICORT [Suspect]
     Active Substance: BUDESONIDE\FORMOTEROL FUMARATE DIHYDRATE
     Indication: ASTHMA
     Dosage: 160/4.5MCG TWO INHALATIONS FOR APPROXIMATELY 9 OR 10 YEARS
     Route: 055
  4. SINGULAIR [Concomitant]
     Active Substance: MONTELUKAST SODIUM
     Indication: ASTHMA
     Route: 048
     Dates: start: 1980
  5. DULARO [Concomitant]

REACTIONS (5)
  - Dyspnoea [Recovered/Resolved with Sequelae]
  - Device issue [Unknown]
  - Wrong technique in device usage process [Unknown]
  - Wheezing [Recovered/Resolved with Sequelae]
  - Insurance issue [Unknown]
